FAERS Safety Report 4279940-2 (Version None)
Quarter: 2004Q1

REPORT INFORMATION
  Report Type: 
  Country: None (occurrence: None)
  Receive Date: 20040126
  Receipt Date: 20040114
  Transmission Date: 20041129
  Serious: Yes (Other)
  Sender: FDA-Public Use
  Company Number: HQWYE314914JAN04

PATIENT
  Age: 62 Year
  Sex: Male

DRUGS (4)
  1. CONCOR (BISOPROLOL, TABLET) [Suspect]
     Indication: ESSENTIAL HYPERTENSION
     Dosage: SEE IMAGE
     Dates: start: 19940101, end: 19960101
  2. CONCOR (BISOPROLOL, TABLET) [Suspect]
     Indication: ESSENTIAL HYPERTENSION
     Dosage: SEE IMAGE
     Dates: start: 19960101
  3. ATACAND [Suspect]
     Indication: ESSENTIAL HYPERTENSION
     Dosage: 8 MG 1X PER 1 DAY
     Dates: start: 19990101
  4. NORVASC [Suspect]
     Indication: ESSENTIAL HYPERTENSION
     Dosage: 5 MG 1X PER 1 DAY
     Dates: start: 19990101

REACTIONS (3)
  - CATARACT [None]
  - DRUG INTERACTION [None]
  - MYOPIA [None]
